FAERS Safety Report 13044294 (Version 1)
Quarter: 2016Q4

REPORT INFORMATION
  Report Type: Spontaneous
  Country: US (occurrence: US)
  Receive Date: 20161220
  Receipt Date: 20161220
  Transmission Date: 20170207
  Serious: No
  Sender: FDA-Public Use
  Company Number: US-ACTAVIS-2015-28833

PATIENT
  Age: 71 Year
  Sex: Male

DRUGS (2)
  1. MINOXIDIL (AMALLC) [Suspect]
     Active Substance: MINOXIDIL
     Indication: ALOPECIA
     Dosage: PER DIRECTIONS
     Route: 061
     Dates: start: 20151219, end: 20151220
  2. CRESTOR [Concomitant]
     Active Substance: ROSUVASTATIN CALCIUM
     Indication: BLOOD CHOLESTEROL INCREASED
     Route: 065

REACTIONS (1)
  - Skin disorder [Recovered/Resolved]

NARRATIVE: CASE EVENT DATE: 20151219
